FAERS Safety Report 9881646 (Version 2)
Quarter: 2014Q1

REPORT INFORMATION
  Report Type: Spontaneous
  Country: US (occurrence: US)
  Receive Date: 20140207
  Receipt Date: 20140306
  Transmission Date: 20141002
  Serious: No
  Sender: FDA-Public Use
  Company Number: US-009507513-1402USA000500

PATIENT
  Age: 52 Year
  Sex: Female
  Weight: 99.77 kg

DRUGS (1)
  1. NEXPLANON [Suspect]
     Dosage: 1 STANDAR PACKAGE OF PF APPLI OF 1, SUBDERMAL ROD
     Route: 059

REACTIONS (7)
  - Venous haemorrhage [Recovered/Resolved]
  - Arthralgia [Recovered/Resolved]
  - Venous injury [Unknown]
  - Wound [Not Recovered/Not Resolved]
  - Accidental exposure to product [Unknown]
  - Product quality issue [Unknown]
  - Tenderness [Recovered/Resolved]
